FAERS Safety Report 5188904-6 (Version None)
Quarter: 2006Q4

REPORT INFORMATION
  Report Type: 
  Country: None (occurrence: None)
  Receive Date: 20061215
  Receipt Date: 20061204
  Transmission Date: 20070319
  Serious: Yes (Death, Other)
  Sender: FDA-Public Use
  Company Number: 2005007328

PATIENT
  Age: 49 Year
  Sex: Male

DRUGS (12)
  1. NEURONTIN [Suspect]
     Indication: NEUROPATHY
     Dosage: 3300 MG (3 IN 1 D)
     Dates: start: 19990101
  2. VALIUM [Suspect]
     Dosage: 20 MG (DAILY)
  3. ALCOHOL (ETHANOL) [Suspect]
  4. ELAVIL [Concomitant]
  5. PERI-COLACE [Concomitant]
  6. MACROBID [Concomitant]
  7. BACLOFEN [Concomitant]
  8. OXYCONTIN [Concomitant]
  9. MORPHINE [Concomitant]
  10. THIAMINE (THIAMINE) [Concomitant]
  11. FOLIC ACID [Concomitant]
  12. SUMYCIN (TETRACYCLINE HYDROCHLORIDE) [Concomitant]

REACTIONS (7)
  - ALCOHOL POISONING [None]
  - COMPLETED SUICIDE [None]
  - DRUG INEFFECTIVE [None]
  - FEAR OF DEATH [None]
  - GUN SHOT WOUND [None]
  - HEAD INJURY [None]
  - INTENTIONAL OVERDOSE [None]
